FAERS Safety Report 24725624 (Version 1)
Quarter: 2024Q4

REPORT INFORMATION
  Report Type: Spontaneous
  Country: US (occurrence: US)
  Receive Date: 20241212
  Receipt Date: 20241212
  Transmission Date: 20250115
  Serious: No
  Sender: ABBVIE
  Company Number: US-ABBVIE-6041660

PATIENT
  Age: 10 Year
  Sex: Male

DRUGS (1)
  1. HUMIRA [Suspect]
     Active Substance: ADALIMUMAB
     Indication: Crohn^s disease
     Dosage: FORM STRENGTH : 40 MILLIGRAMS
     Route: 058

REACTIONS (4)
  - Injection site coldness [Unknown]
  - Injection site discharge [Not Recovered/Not Resolved]
  - Injection site papule [Unknown]
  - Injection site warmth [Unknown]

NARRATIVE: CASE EVENT DATE: 20241209
